FAERS Safety Report 4843898-5 (Version None)
Quarter: 2005Q4

REPORT INFORMATION
  Report Type: 
  Country: None (occurrence: None)
  Receive Date: 20051202
  Receipt Date: 20050817
  Transmission Date: 20060501
  Serious: No
  Sender: FDA-Public Use
  Company Number: 200517287GDDC

PATIENT
  Age: 53 Year
  Sex: Female
  Weight: 38 kg

DRUGS (4)
  1. RIFADIN [Suspect]
     Indication: PULMONARY TUBERCULOSIS
     Route: 048
     Dates: start: 20050523
  2. ISONIAZID [Concomitant]
     Dosage: DOSE: UNK
     Dates: start: 20050523
  3. ETHAMBUTOL [Concomitant]
     Dosage: DOSE: UNK
     Route: 048
     Dates: start: 20050523
  4. PYRAMIDE [Concomitant]
     Dosage: DOSE: UNK
     Route: 048
     Dates: start: 20050523

REACTIONS (2)
  - LEUKOPENIA [None]
  - PANCYTOPENIA [None]
